FAERS Safety Report 15902413 (Version 1)
Quarter: 2019Q1

REPORT INFORMATION
  Report Type: Spontaneous
  Country: US (occurrence: US)
  Receive Date: 20190201
  Receipt Date: 20190201
  Transmission Date: 20190417
  Serious: No
  Sender: FDA-Public Use
  Company Number: US-GLAXOSMITHKLINE-US2019GSK012135

PATIENT
  Sex: Female

DRUGS (1)
  1. NUCALA [Suspect]
     Active Substance: MEPOLIZUMAB
     Indication: ASTHMA
     Dosage: 100 MG, CYC
     Route: 058
     Dates: start: 2018, end: 20181123

REACTIONS (7)
  - Back pain [Unknown]
  - Hypersensitivity [Unknown]
  - Fatigue [Unknown]
  - Acne [Unknown]
  - Rash [Unknown]
  - Headache [Unknown]
  - Tongue disorder [Unknown]
